FAERS Safety Report 9169109 (Version 1)
Quarter: 2013Q1

REPORT INFORMATION
  Report Type: Spontaneous
  Country: NO (occurrence: NO)
  Receive Date: 20130318
  Receipt Date: 20130318
  Transmission Date: 20140127
  Serious: Yes (Life-Threatening, Hospitalization, Other)
  Sender: FDA-Public Use
  Company Number: NO-ASTRAZENECA-2013SE17382

PATIENT
  Age: 72 Year
  Sex: Male
  Weight: 91 kg

DRUGS (5)
  1. ZESTORETIC [Suspect]
     Indication: HYPERTENSION
     Route: 048
     Dates: start: 1998
  2. ZESTORETIC [Suspect]
     Indication: HYPERTENSION
     Route: 048
     Dates: start: 1998, end: 2012
  3. ALBYL-E [Concomitant]
  4. LEVAXIN [Concomitant]
  5. HYPERTENSION DRUG [Concomitant]

REACTIONS (5)
  - Spinal muscular atrophy [Unknown]
  - Myocardial infarction [Unknown]
  - Blood pressure increased [Unknown]
  - Feeling hot [Unknown]
  - Local swelling [Unknown]
